FAERS Safety Report 15677454 (Version 6)
Quarter: 2019Q3

REPORT INFORMATION
  Report Type: Report from Study
  Country: CA (occurrence: CA)
  Receive Date: 20181130
  Receipt Date: 20190830
  Transmission Date: 20191004
  Serious: Yes (Hospitalization, Other)
  Sender: FDA-Public Use
  Company Number: CA-SA-2017SA215986

PATIENT
  Age: 50 Year
  Sex: Female

DRUGS (8)
  1. ACETAMINOPHEN. [Concomitant]
     Active Substance: ACETAMINOPHEN
     Indication: PREMEDICATION
     Dosage: 1 G,PRN
     Route: 048
     Dates: start: 20171030
  2. REACTINE [CETIRIZINE HYDROCHLORIDE] [Concomitant]
     Active Substance: CETIRIZINE HYDROCHLORIDE
     Indication: PREMEDICATION
     Dosage: 5 MG,UNK
     Route: 048
     Dates: start: 20171030, end: 20171101
  3. RANITIDINE. [Concomitant]
     Active Substance: RANITIDINE
     Indication: PREMEDICATION
     Dosage: 150 MG,UNK
     Route: 048
     Dates: start: 20171030, end: 20171101
  4. ACICLOVIR [Suspect]
     Active Substance: ACYCLOVIR
     Dosage: 200 MG,BID
     Route: 048
     Dates: start: 20171030
  5. METHYLPREDNISOLONE. [Concomitant]
     Active Substance: METHYLPREDNISOLONE
     Indication: PREMEDICATION
     Dosage: 1 G,UNK
     Route: 042
     Dates: start: 20171030, end: 20171101
  6. ALEMTUZUMAB [Suspect]
     Active Substance: ALEMTUZUMAB
     Indication: RELAPSING-REMITTING MULTIPLE SCLEROSIS
     Dosage: 12 MG,QD
     Route: 041
     Dates: start: 20171030, end: 20171101
  7. DULOXETINE HYDROCHLORIDE. [Suspect]
     Active Substance: DULOXETINE HYDROCHLORIDE
     Dosage: UNK UNK,UNK
     Route: 048
  8. ACETAMINOPHEN. [Concomitant]
     Active Substance: ACETAMINOPHEN
     Indication: HEADACHE
     Dosage: UNK

REACTIONS (37)
  - Heart rate decreased [Recovered/Resolved]
  - Insomnia [Recovering/Resolving]
  - Abdominal pain upper [Recovered/Resolved]
  - Lymphocyte count decreased [Recovered/Resolved]
  - Cough [Recovering/Resolving]
  - Urinary sediment present [Recovered/Resolved]
  - Fatigue [Recovered/Resolved]
  - Drug ineffective [Unknown]
  - Sinus bradycardia [Recovered/Resolved]
  - Headache [Recovered/Resolved]
  - Withdrawal syndrome [Recovering/Resolving]
  - Weight increased [Recovering/Resolving]
  - Insomnia [Not Recovered/Not Resolved]
  - Fatigue [Not Recovered/Not Resolved]
  - Malaise [Unknown]
  - Immunodeficiency [Unknown]
  - Crystal urine present [Not Recovered/Not Resolved]
  - Urinary casts [Not Recovered/Not Resolved]
  - Platelet count decreased [Not Recovered/Not Resolved]
  - Urine abnormality [Recovered/Resolved]
  - Blood pressure increased [Recovered/Resolved]
  - Headache [Recovered/Resolved]
  - Central nervous system lesion [Not Recovered/Not Resolved]
  - Red cell distribution width decreased [Recovered/Resolved]
  - Grip strength decreased [Not Recovered/Not Resolved]
  - Hospitalisation [Unknown]
  - Bacterial test positive [Not Recovered/Not Resolved]
  - White blood cells urine positive [Not Recovered/Not Resolved]
  - Nausea [Recovered/Resolved]
  - Rash [Recovered/Resolved]
  - Influenza [Recovered/Resolved]
  - Aphonia [Recovering/Resolving]
  - Sinusitis [Recovered/Resolved]
  - Multiple sclerosis relapse [Recovering/Resolving]
  - Mean cell haemoglobin concentration increased [Recovered/Resolved]
  - Urine analysis abnormal [Not Recovered/Not Resolved]
  - Arthralgia [Recovered/Resolved]

NARRATIVE: CASE EVENT DATE: 201609
